FAERS Safety Report 4933002-7 (Version None)
Quarter: 2006Q1

REPORT INFORMATION
  Report Type: 
  Country: None (occurrence: None)
  Receive Date: 20060302
  Receipt Date: 20060302
  Transmission Date: 20060701
  Serious: Yes (Life-Threatening, Hospitalization)
  Sender: FDA-Public Use
  Company Number: None

PATIENT
  Sex: Female

DRUGS (9)
  1. TEQUIN [Suspect]
     Indication: CELLULITIS
     Dosage: 400 MG ONE A DAY PO
     Route: 048
     Dates: start: 20060202, end: 20060204
  2. ACCUPRIL [Concomitant]
  3. LIPITOR [Concomitant]
  4. ACTOS [Concomitant]
  5. MICRONASE [Concomitant]
  6. ALDOMET [Concomitant]
  7. CARDIZEM CD [Concomitant]
  8. LOZOL [Concomitant]
  9. GLUCOPHAGE [Concomitant]

REACTIONS (1)
  - HYPOGLYCAEMIA [None]
